FAERS Safety Report 6931149-7 (Version None)
Quarter: 2010Q3

REPORT INFORMATION
  Report Type: 
  Country: None (occurrence: None)
  Receive Date: 20100818
  Receipt Date: 20100811
  Transmission Date: 20110219
  Serious: Yes (Other)
  Sender: FDA-Public Use
  Company Number: BE-ABBOTT-10P-013-0648540-00

PATIENT
  Sex: Female
  Weight: 75 kg

DRUGS (6)
  1. HUMIRA [Suspect]
     Indication: PSORIASIS
     Dates: start: 20100128
  2. CORUNO [Concomitant]
     Indication: HYPERTENSION
  3. EMCONCOR [Concomitant]
     Indication: HYPERTENSION
  4. NITROGLYCERIN [Concomitant]
     Indication: CARDIAC DISORDER
  5. DEPONIT [Concomitant]
     Indication: PRODUCT USED FOR UNKNOWN INDICATION
  6. FRUSAMIL [Concomitant]
     Indication: PRODUCT USED FOR UNKNOWN INDICATION

REACTIONS (3)
  - INFARCTION [None]
  - OEDEMA PERIPHERAL [None]
  - SKIN ULCER [None]
